FAERS Safety Report 7225144-0 (Version None)
Quarter: 2011Q1

REPORT INFORMATION
  Report Type: 
  Country: None (occurrence: None)
  Receive Date: 20110113
  Receipt Date: 20110104
  Transmission Date: 20110831
  Serious: Yes (Hospitalization)
  Sender: FDA-Public Use
  Company Number: A0903330A

PATIENT

DRUGS (3)
  1. PENICILLIN [Suspect]
     Route: 065
  2. NO CONCURRENT MEDICATION [Concomitant]
  3. LAMICTAL [Suspect]
     Indication: BIPOLAR DISORDER
     Route: 048

REACTIONS (1)
  - RASH VESICULAR [None]
